FAERS Safety Report 5322296-4 (Version None)
Quarter: 2007Q2

REPORT INFORMATION
  Report Type: 
  Country: None (occurrence: None)
  Receive Date: 20070511
  Receipt Date: 20070510
  Transmission Date: 20071010
  Serious: Yes (Life-Threatening)
  Sender: FDA-Public Use
  Company Number: B0468011A

PATIENT
  Age: 63 Year
  Sex: Female

DRUGS (6)
  1. ZOFRAN [Suspect]
     Route: 042
     Dates: start: 20051220, end: 20061220
  2. SERESTA [Suspect]
     Route: 048
  3. SOLU-MEDROL [Suspect]
     Indication: PROPHYLAXIS
     Route: 042
     Dates: start: 20051220, end: 20061220
  4. OSMOTAN [Suspect]
     Indication: PROPHYLAXIS
     Route: 042
     Dates: start: 20051220, end: 20061220
  5. DAFLON [Suspect]
     Dosage: 1000MG PER DAY
     Route: 048
  6. GEMZAR [Suspect]
     Indication: BREAST CANCER
     Dosage: 2G CYCLIC
     Route: 042
     Dates: start: 20060110, end: 20061221

REACTIONS (9)
  - ANGIODERMATITIS [None]
  - ESCHERICHIA SEPSIS [None]
  - HAEMOLYTIC ANAEMIA [None]
  - HAEMOLYTIC URAEMIC SYNDROME [None]
  - LIVIDITY [None]
  - RED BLOOD CELL SCHISTOCYTES PRESENT [None]
  - RENAL FAILURE [None]
  - SKIN ULCER [None]
  - THROMBOCYTOPENIA [None]
